FAERS Safety Report 10195987 (Version 2)
Quarter: 2014Q2

REPORT INFORMATION
  Report Type: Report from Study
  Country: VE (occurrence: VE)
  Receive Date: 20140527
  Receipt Date: 20140527
  Transmission Date: 20141212
  Serious: Yes (Death, Hospitalization)
  Sender: FDA-Public Use
  Company Number: PHHY2014VE044808

PATIENT
  Age: 70 Year
  Sex: Female

DRUGS (1)
  1. AFINITOR [Suspect]
     Indication: BREAST CANCER
     Dosage: 10 MG, DAILY
     Route: 048
     Dates: start: 20140322, end: 20140407

REACTIONS (5)
  - Pneumonia [Fatal]
  - Gastric infection [Fatal]
  - Nerve injury [Fatal]
  - Rash [Recovered/Resolved]
  - Oral candidiasis [Recovered/Resolved]
